FAERS Safety Report 7828765-7 (Version None)
Quarter: 2011Q4

REPORT INFORMATION
  Report Type: 
  Country: None (occurrence: None)
  Receive Date: 20111020
  Receipt Date: 20101213
  Transmission Date: 20120403
  Serious: No
  Sender: FDA-Public Use
  Company Number: US-MYLANLABS-2010S1020319

PATIENT
  Age: 71 Year
  Sex: Female

DRUGS (3)
  1. ROLAIDS /00069401/ [Concomitant]
  2. CARVEDILOL [Suspect]
     Indication: CARDIAC FAILURE CONGESTIVE
     Route: 048
     Dates: start: 20100319, end: 20100419
  3. CARVEDILOL [Suspect]
     Route: 048
     Dates: start: 20100507, end: 20100521

REACTIONS (12)
  - DEPRESSION [None]
  - GASTROOESOPHAGEAL REFLUX DISEASE [None]
  - NAUSEA [None]
  - VAGINAL HAEMORRHAGE [None]
  - ECZEMA [None]
  - ASTHENIA [None]
  - INFLUENZA LIKE ILLNESS [None]
  - ABDOMINAL DISCOMFORT [None]
  - NAIL GROWTH ABNORMAL [None]
  - RASH GENERALISED [None]
  - LETHARGY [None]
  - URINARY INCONTINENCE [None]
